FAERS Safety Report 20641333 (Version 1)
Quarter: 2022Q1

REPORT INFORMATION
  Report Type: Spontaneous
  Country: FR (occurrence: FR)
  Receive Date: 20220328
  Receipt Date: 20220328
  Transmission Date: 20220423
  Serious: Yes (Hospitalization, Other)
  Sender: FDA-Public Use
  Company Number: FR-AFSSAPS-CN20220350

PATIENT
  Age: 50 Year
  Sex: Male
  Weight: 84 kg

DRUGS (3)
  1. TERBINAFINE [Suspect]
     Active Substance: TERBINAFINE
     Indication: Sycosis barbae
     Dosage: 250 MILLIGRAM, ONCE A DAY (1 DAY)
     Route: 048
     Dates: start: 20220218, end: 20220224
  2. AUGMENTIN [Suspect]
     Active Substance: AMOXICILLIN\CLAVULANATE POTASSIUM
     Indication: Sycosis barbae
     Dosage: 3 GRAM, ONCE A DAY (1 G * 3)
     Route: 048
     Dates: start: 20220218, end: 20220225
  3. PRISTINAMYCIN [Suspect]
     Active Substance: PRISTINAMYCIN
     Indication: Sycosis barbae
     Dosage: 3 GRAM, ONCE A DAY (1G * 3)
     Route: 048
     Dates: start: 20220214, end: 20220218

REACTIONS (1)
  - Cholestatic liver injury [Not Recovered/Not Resolved]

NARRATIVE: CASE EVENT DATE: 20220218
